FAERS Safety Report 21394178 (Version 1)
Quarter: 2022Q3

REPORT INFORMATION
  Report Type: Spontaneous
  Country: DE (occurrence: DE)
  Receive Date: 20220930
  Receipt Date: 20220930
  Transmission Date: 20221026
  Serious: Yes (Hospitalization, Other)
  Sender: FDA-Public Use
  Company Number: DE-ADRED-05794-01

PATIENT
  Age: 73 Year
  Sex: Female
  Weight: 66 kg

DRUGS (5)
  1. AMOXICILLIN [Suspect]
     Active Substance: AMOXICILLIN
     Indication: Product used for unknown indication
     Dosage: 1000 MG
  2. METOPROLOL [Concomitant]
     Active Substance: METOPROLOL
     Indication: Product used for unknown indication
     Dosage: 2 DOSAGE FORMS DAILY; 47.5 MG, 1-0-1-0, UNIT DOSE : 1 DF , FREQUENCY : BD
  3. OMEPRAZOLE [Concomitant]
     Active Substance: OMEPRAZOLE
     Indication: Product used for unknown indication
     Dosage: 1 DOSAGE FORMS DAILY; 20 MG, 1-0-0-0, UNIT DOSE : 1 DF , FREQUENCY : OD
  4. PRAMIPEXOLE [Concomitant]
     Active Substance: PRAMIPEXOLE
     Indication: Product used for unknown indication
     Dosage: 2 DOSAGE FORMS DAILY; 0.35 MG, 0-0-2-0, UNIT DOSE : 2 DF , FREQUENCY : OD
  5. Duoventrinettes N [Concomitant]
     Indication: Product used for unknown indication
     Dosage: 2 DOSAGE FORMS DAILY; 1-0-1-0, UNIT DOSE : 1 DF , FREQUENCY : BD

REACTIONS (3)
  - Urticaria [Unknown]
  - Anaphylactic reaction [Unknown]
  - Pruritus [Unknown]
